FAERS Safety Report 5271480-7 (Version None)
Quarter: 2007Q1

REPORT INFORMATION
  Report Type: 
  Country: None (occurrence: None)
  Receive Date: 20061214
  Receipt Date: 20060803
  Transmission Date: 20070707
  Serious: Yes (Hospitalization)
  Sender: FDA-Public Use
  Company Number: 2006096805

PATIENT
  Age: 70 Year
  Sex: Female
  Weight: 85.2762 kg

DRUGS (1)
  1. BEXTRA [Suspect]
     Indication: SPINAL COLUMN STENOSIS
     Dosage: 20 MG (20 MG, 1 IN 1 D)

REACTIONS (1)
  - MYOCARDIAL INFARCTION [None]
